FAERS Safety Report 17649941 (Version 1)
Quarter: 2020Q2

REPORT INFORMATION
  Report Type: Spontaneous
  Country: US (occurrence: US)
  Receive Date: 20200408
  Receipt Date: 20200408
  Transmission Date: 20200713
  Serious: Yes (Hospitalization)
  Sender: FDA-Public Use
  Company Number: None

PATIENT
  Age: 62 Year
  Sex: Male

DRUGS (8)
  1. ALLOPURINOL. [Concomitant]
     Active Substance: ALLOPURINOL
  2. ATENOLOL. [Concomitant]
     Active Substance: ATENOLOL
  3. LOSARTAN POT [Concomitant]
     Active Substance: LOSARTAN POTASSIUM
  4. FOLIC ACID. [Concomitant]
     Active Substance: FOLIC ACID
  5. METHOTREXATE. [Concomitant]
     Active Substance: METHOTREXATE
  6. ENBREL [Suspect]
     Active Substance: ETANERCEPT
     Indication: ANKYLOSING SPONDYLITIS
     Dosage: ?          OTHER DOSE:1 PEN;?
     Route: 058
     Dates: start: 201105
  7. ASPIRIN. [Concomitant]
     Active Substance: ASPIRIN
  8. PREDNISONE. [Concomitant]
     Active Substance: PREDNISONE

REACTIONS (4)
  - Fall [None]
  - Head injury [None]
  - Post procedural infection [None]
  - Cerebral haemorrhage [None]

NARRATIVE: CASE EVENT DATE: 20200324
